FAERS Safety Report 7569307 (Version 4)
Quarter: 2013Q1

REPORT INFORMATION
  Report Type: Report from Study
  Country: JP (occurrence: JP)
  Receive Date: 20100901
  Receipt Date: 20130131
  Transmission Date: 20140127
  Serious: Yes (Death, Life-Threatening, Hospitalization, Other)
  Sender: FDA-Public Use
  Company Number: PHHY2010JP56848

PATIENT
  Age: 78 Year
  Sex: Male
  Weight: 51 kg

DRUGS (15)
  1. ICL670A [Suspect]
     Indication: MYELODYSPLASTIC SYNDROME
     Dosage: 750 MG, DAILY
     Route: 048
     Dates: start: 20090519, end: 20090902
  2. VFEND [Concomitant]
     Dosage: 150 MG, UNK
     Route: 048
     Dates: start: 2009
  3. PREDONINE [Concomitant]
     Dosage: 10 MG, UNK
     Route: 048
     Dates: start: 2009
  4. MAGMITT [Concomitant]
     Dosage: 990 MG, UNK
     Route: 048
     Dates: start: 2009
  5. MIYA-BM [Concomitant]
     Dosage: 3 G, UNK
     Route: 048
     Dates: start: 2009
  6. SENNOSIDE [Concomitant]
     Dosage: 24 MG, UNK
     Route: 048
     Dates: start: 2009
  7. TAKEPRON [Concomitant]
     Dosage: 15 MG, UNK
     Route: 048
     Dates: start: 20090519
  8. SELBEX [Concomitant]
     Dosage: 1.5 MG, UNK
     Route: 048
     Dates: start: 20090519
  9. DAIPHEN [Concomitant]
     Dosage: 1 G, UNK
     Route: 048
     Dates: start: 20090519
  10. BENET [Concomitant]
     Dosage: 17.5 DF, UNK
     Route: 048
     Dates: start: 20090528
  11. RED BLOOD CELLS, CONCENTRATED [Concomitant]
     Dosage: 2 U, UNK
     Dates: start: 20090602
  12. RED BLOOD CELLS, CONCENTRATED [Concomitant]
     Dosage: 2 U, UNK
     Dates: start: 20090619
  13. RED BLOOD CELLS, CONCENTRATED [Concomitant]
     Dosage: 2 U, UNK
     Dates: start: 20090721
  14. RED BLOOD CELLS, CONCENTRATED [Concomitant]
     Dosage: 2 U, UNK
     Dates: start: 20090813
  15. RED BLOOD CELLS, CONCENTRATED [Concomitant]
     Dosage: 2 U, UNK
     Dates: start: 20090827

REACTIONS (5)
  - Cerebral haemorrhage [Fatal]
  - Deep vein thrombosis [Not Recovered/Not Resolved]
  - Local swelling [Unknown]
  - Pneumonia [Recovering/Resolving]
  - Cellulitis [Recovered/Resolved]
